FAERS Safety Report 6056991-9 (Version None)
Quarter: 2009Q1

REPORT INFORMATION
  Report Type: 
  Country: None (occurrence: None)
  Receive Date: 20090129
  Receipt Date: 20090121
  Transmission Date: 20090719
  Serious: Yes (Hospitalization)
  Sender: FDA-Public Use
  Company Number: FR-AMGEN-US330634

PATIENT
  Sex: Male

DRUGS (2)
  1. ENBREL [Suspect]
     Indication: ANKYLOSING SPONDYLITIS
     Route: 058
     Dates: start: 20080101, end: 20080901
  2. CEBUTID [Concomitant]
     Dosage: UNKNOWN DOSE, ONLY IF NECESSARY
     Route: 065

REACTIONS (1)
  - PULMONARY TUBERCULOSIS [None]
